FAERS Safety Report 15532711 (Version 3)
Quarter: 2019Q1

REPORT INFORMATION
  Report Type: Spontaneous
  Country: US (occurrence: US)
  Receive Date: 20181019
  Receipt Date: 20190326
  Transmission Date: 20190417
  Serious: No
  Sender: FDA-Public Use
  Company Number: US-MYLANLABS-2018M1073101

PATIENT
  Sex: Female
  Weight: 48 kg

DRUGS (1)
  1. ESTRADIOL TRANSDERMAL SYSTEM [Suspect]
     Active Substance: ESTRADIOL
     Dosage: 0.025 MG, DAY
     Route: 062

REACTIONS (3)
  - Product adhesion issue [Unknown]
  - Product dose omission [Unknown]
  - Application site rash [Unknown]
